FAERS Safety Report 6145274-4 (Version None)
Quarter: 2009Q2

REPORT INFORMATION
  Report Type: 
  Country: None (occurrence: None)
  Receive Date: 20090406
  Receipt Date: 20090402
  Transmission Date: 20091009
  Serious: Yes (Death)
  Sender: FDA-Public Use
  Company Number: PHEH2009US03246

PATIENT
  Sex: Male
  Weight: 69.388 kg

DRUGS (5)
  1. ZOMETA [Suspect]
     Dosage: UNK
  2. RECLAST [Suspect]
     Dosage: 5 MG X 1
     Route: 042
  3. ARICEPT [Concomitant]
     Indication: DEMENTIA
     Dosage: 10 MG, QD
     Route: 048
     Dates: start: 20060401
  4. NAMENDA [Concomitant]
     Indication: DEMENTIA
     Dosage: 10 MG, BID
     Route: 048
     Dates: start: 20070801
  5. RISPERDAL [Concomitant]
     Dosage: 05 MG, BID
     Route: 048

REACTIONS (5)
  - ARTHRALGIA [None]
  - CARDIAC ARREST [None]
  - CHEST DISCOMFORT [None]
  - CHEST PAIN [None]
  - MYOCARDIAL INFARCTION [None]
